FAERS Safety Report 7584350-6 (Version None)
Quarter: 2011Q2

REPORT INFORMATION
  Report Type: 
  Country: None (occurrence: None)
  Receive Date: 20110630
  Receipt Date: 20110628
  Transmission Date: 20111010
  Serious: No
  Sender: FDA-Public Use
  Company Number: US-PFIZER INC-2011115490

PATIENT
  Sex: Male
  Weight: 86.168 kg

DRUGS (2)
  1. CEPHALEXIN [Concomitant]
     Indication: ANTI-INFECTIVE THERAPY
     Dosage: 500 MG, EVERY 6 HOURS
  2. CELEBREX [Suspect]
     Indication: MENISCUS LESION
     Dosage: 200 MG, DAILY
     Route: 048
     Dates: start: 20110525

REACTIONS (4)
  - DIZZINESS [None]
  - FATIGUE [None]
  - HEART RATE INCREASED [None]
  - ANXIETY [None]
